FAERS Safety Report 6065439-X (Version None)
Quarter: 2009Q1

REPORT INFORMATION
  Report Type: 
  Country: None (occurrence: None)
  Receive Date: 20090130
  Receipt Date: 20090122
  Transmission Date: 20090719
  Serious: Yes (Hospitalization, Other)
  Sender: FDA-Public Use
  Company Number: 2009AL000405

PATIENT
  Age: 72 Year
  Sex: Female

DRUGS (2)
  1. PROPYLTHIOURACIL TAB [Suspect]
     Indication: HYPERTHYROIDISM
     Dosage: 450 MG
  2. IMIDAZOLE DERIVATIVES [Concomitant]

REACTIONS (1)
  - PNEUMONIA [None]
